FAERS Safety Report 10519918 (Version 1)
Quarter: 2014Q4

REPORT INFORMATION
  Report Type: Spontaneous
  Country: US (occurrence: US)
  Receive Date: 20141015
  Receipt Date: 20141015
  Transmission Date: 20150528
  Serious: Yes (Other)
  Sender: FDA-Public Use
  Company Number: US-ABBVIE-14P-163-1290693-00

PATIENT
  Sex: Male

DRUGS (3)
  1. CASODEX [Concomitant]
     Active Substance: BICALUTAMIDE
     Indication: PROSTATE CANCER
     Dates: end: 20140416
  2. LUPRON DEPOT [Suspect]
     Active Substance: LEUPROLIDE ACETATE
     Indication: PROSTATE CANCER
     Route: 065
     Dates: start: 201106
  3. ANTIBIOTICS [Concomitant]
     Active Substance: UNSPECIFIED INGREDIENT
     Indication: PROSTATITIS
     Dates: start: 20100830, end: 20100922

REACTIONS (7)
  - Back pain [Unknown]
  - Prostatic specific antigen increased [Recovering/Resolving]
  - Lymphadenopathy [Unknown]
  - Nerve compression [Unknown]
  - Osteolysis [Unknown]
  - Joint stiffness [Unknown]
  - Musculoskeletal pain [Unknown]
